FAERS Safety Report 18303005 (Version 1)
Quarter: 2020Q3

REPORT INFORMATION
  Report Type: Other
  Country: CA (occurrence: CA)
  Receive Date: 20200923
  Receipt Date: 20200923
  Transmission Date: 20201103
  Serious: Yes (Death, Hospitalization, Other)
  Sender: FDA-Public Use
  Company Number: CA-APOTEX-2020AP018074

PATIENT
  Age: 66 Year
  Sex: Male

DRUGS (3)
  1. SANDOSTATIN [Suspect]
     Active Substance: OCTREOTIDE ACETATE
     Dosage: 150 MICROGRAM, BID
     Route: 058
  2. SANDOSTATIN [Suspect]
     Active Substance: OCTREOTIDE ACETATE
     Indication: CARCINOID TUMOUR
     Dosage: 30 MILLIGRAM, Q.M.T.
     Route: 030
  3. AMLODIPINE [Suspect]
     Active Substance: AMLODIPINE BESYLATE
     Indication: HYPERTENSION
     Dosage: 5 MILLIGRAM, QD
     Route: 065

REACTIONS (12)
  - Respiratory tract congestion [Fatal]
  - Intestinal obstruction [Fatal]
  - Inappropriate schedule of product administration [Fatal]
  - Pyrexia [Fatal]
  - Oropharyngeal pain [Fatal]
  - Death [Fatal]
  - Cerebrovascular accident [Fatal]
  - Nasopharyngitis [Fatal]
  - Blood pressure increased [Fatal]
  - Feeling abnormal [Fatal]
  - Malaise [Fatal]
  - Upper respiratory tract infection [Fatal]
